FAERS Safety Report 8730461 (Version 2)
Quarter: 2013Q3

REPORT INFORMATION
  Report Type: Spontaneous
  Country: US (occurrence: US)
  Receive Date: 20120817
  Receipt Date: 20130806
  Transmission Date: 20140515
  Serious: Yes (Other)
  Sender: FDA-Public Use
  Company Number: US-ASTRAZENECA-2012SE55904

PATIENT
  Age: 33 Year
  Sex: Male
  Weight: 70.3 kg

DRUGS (3)
  1. SEROQUEL XR [Suspect]
     Route: 048
  2. SEROQUEL XR [Suspect]
     Route: 048
  3. SEROQUEL XR [Suspect]
     Route: 048

REACTIONS (18)
  - Suicidal ideation [Unknown]
  - Diarrhoea [Unknown]
  - Erectile dysfunction [Unknown]
  - Chills [Unknown]
  - Hyperhidrosis [Unknown]
  - Aggression [Unknown]
  - Hallucination [Unknown]
  - Insomnia [Unknown]
  - Loss of libido [Unknown]
  - Depression [Unknown]
  - Feeling abnormal [Unknown]
  - Constipation [Unknown]
  - Weight increased [Unknown]
  - Restless legs syndrome [Unknown]
  - Vomiting [Unknown]
  - Drug withdrawal syndrome [Unknown]
  - Intentional drug misuse [Unknown]
  - Drug dose omission [Unknown]
